FAERS Safety Report 14303036 (Version 1)
Quarter: 2017Q4

REPORT INFORMATION
  Report Type: Spontaneous
  Country: US (occurrence: US)
  Receive Date: 20171219
  Receipt Date: 20171219
  Transmission Date: 20180321
  Serious: Yes (Other)
  Sender: FDA-Public Use
  Company Number: US-SAGE PRODUCTS, LLC-2037413

PATIENT

DRUGS (3)
  1. CHLORHEXIDINE GLUCONATE. [Suspect]
     Active Substance: CHLORHEXIDINE GLUCONATE
     Indication: PREOPERATIVE CARE
     Route: 061
  2. COMFORT SHIELD BARRIER [Suspect]
     Active Substance: DIMETHICONE
     Route: 061
  3. COMFORT BATH WASHCLOTH [Suspect]
     Active Substance: COSMETICS
     Route: 061

REACTIONS (3)
  - Burkholderia test positive [Unknown]
  - Bacterial disease carrier [Unknown]
  - Suspected transmission of an infectious agent via product [Unknown]

NARRATIVE: CASE EVENT DATE: 20170902
